FAERS Safety Report 22120360 (Version 1)
Quarter: 2023Q1

REPORT INFORMATION
  Report Type: Spontaneous
  Country: US (occurrence: None)
  Receive Date: 20230321
  Receipt Date: 20230321
  Transmission Date: 20230418
  Serious: No
  Sender: FDA-Public Use
  Company Number: US-ROCHE-3249880

PATIENT

DRUGS (2)
  1. EVRYSDI [Suspect]
     Active Substance: RISDIPLAM
     Indication: Spinal muscular atrophy
     Route: 065
  2. KEFLEX [Concomitant]
     Active Substance: CEPHALEXIN
     Dosage: ONGOING UNTIL 22-DEC-2022.

REACTIONS (2)
  - Urinary tract infection [Unknown]
  - Drug resistance [Unknown]
